FAERS Safety Report 5660978-5 (Version None)
Quarter: 2008Q1

REPORT INFORMATION
  Report Type: 
  Country: None (occurrence: None)
  Receive Date: 20080311
  Receipt Date: 20080225
  Transmission Date: 20080703
  Serious: Yes (Death)
  Sender: FDA-Public Use
  Company Number: NG-PFIZER INC-2008010074

PATIENT
  Sex: Male

DRUGS (2)
  1. CADUET [Suspect]
     Indication: HYPERTENSION
     Dosage: TEXT:10/10 MG
     Route: 048
  2. CADUET [Suspect]
     Indication: HYPERLIPIDAEMIA

REACTIONS (1)
  - ACUTE LEUKAEMIA [None]
